FAERS Safety Report 9672412 (Version 1)
Quarter: 2013Q4

REPORT INFORMATION
  Report Type: Spontaneous
  Country: US (occurrence: US)
  Receive Date: 20131106
  Receipt Date: 20131106
  Transmission Date: 20140711
  Serious: Yes (Life-Threatening)
  Sender: FDA-Public Use
  Company Number: US-ROXANE LABORATORIES, INC.-2013-RO-01771RO

PATIENT
  Age: 69 Year
  Sex: Male

DRUGS (4)
  1. SERTRALINE [Suspect]
     Dosage: 50 MG
  2. ROPINIROLE HCL [Suspect]
     Dosage: 0.5 MG
  3. AMIODARONE [Suspect]
     Dosage: 200 MG
  4. ESZOPICLONE [Suspect]
     Dosage: 2 MG

REACTIONS (5)
  - Torsade de pointes [Recovered/Resolved]
  - Ventricular tachycardia [Recovered/Resolved]
  - Sinus bradycardia [Recovered/Resolved]
  - Bundle branch block left [Unknown]
  - Electrocardiogram QT prolonged [Recovered/Resolved]
